FAERS Safety Report 9134631 (Version 1)
Quarter: 2013Q1

REPORT INFORMATION
  Report Type: Spontaneous
  Country: US (occurrence: US)
  Receive Date: 20130304
  Receipt Date: 20130304
  Transmission Date: 20140127
  Serious: No
  Sender: FDA-Public Use
  Company Number: US-PFIZER INC-2013070789

PATIENT
  Age: 67 Year
  Sex: Female

DRUGS (11)
  1. MORPHINE SULFATE [Suspect]
     Dosage: UNK
  2. CIPROFLOXACIN [Suspect]
     Dosage: UNK
  3. SPIRIVA [Suspect]
     Dosage: UNK
  4. PROVENTIL [Suspect]
     Dosage: UNK
  5. BRONKOSOL [Suspect]
     Dosage: UNK
  6. ALBUTEROL [Suspect]
     Dosage: UNK
  7. ATROVENT [Suspect]
     Dosage: UNK
  8. XOPENEX [Suspect]
     Dosage: UNK
  9. VIOXX [Suspect]
     Dosage: UNK
  10. ZANTAC [Suspect]
     Dosage: UNK
  11. PARALDEHYDE [Suspect]
     Dosage: UNK

REACTIONS (1)
  - Drug hypersensitivity [Unknown]
